FAERS Safety Report 18109877 (Version 1)
Quarter: 2020Q3

REPORT INFORMATION
  Report Type: Spontaneous
  Country: IE (occurrence: IE)
  Receive Date: 20200804
  Receipt Date: 20200804
  Transmission Date: 20201103
  Serious: Yes (Other)
  Sender: FDA-Public Use
  Company Number: IE-ADVANZ PHARMA-202007007409

PATIENT

DRUGS (3)
  1. PREDNISOLONE. [Suspect]
     Active Substance: PREDNISOLONE
     Indication: CHEST PAIN
     Dosage: TABLETS GASTRO?RESISTANT, COMMENCED WITH 8 X 5MG TABS AND REDUCED THEREAFTER BY ONE A DAY TO COURSE
     Route: 048
     Dates: start: 20200710
  2. PREDNISOLONE. [Suspect]
     Active Substance: PREDNISOLONE
     Indication: DYSPNOEA
  3. AUGMENTIN [Concomitant]
     Active Substance: AMOXICILLIN\CLAVULANATE POTASSIUM
     Dosage: UNK UNK, TID
     Route: 048
     Dates: start: 20200710

REACTIONS (9)
  - Mania [Unknown]
  - Personal relationship issue [Unknown]
  - General physical health deterioration [Unknown]
  - Paranoia [Unknown]
  - Irritability [Unknown]
  - Suicidal ideation [Unknown]
  - Anger [Unknown]
  - Crying [Unknown]
  - Depression [Unknown]
